FAERS Safety Report 4359629-1 (Version None)
Quarter: 2004Q2

REPORT INFORMATION
  Report Type: 
  Country: None (occurrence: None)
  Receive Date: 20040513
  Receipt Date: 20040503
  Transmission Date: 20050107
  Serious: Yes (Other)
  Sender: FDA-Public Use
  Company Number: 2004029511

PATIENT
  Age: 4 Year
  Sex: Male
  Weight: 25 kg

DRUGS (2)
  1. ZITHROMAX [Suspect]
     Indication: RESPIRATORY TRACT INFECTION
     Dosage: 225 MG (225 MG, 1 IN  1 D), ORAL
     Route: 048
     Dates: start: 20040327, end: 20040327
  2. ALBENDAZOLE (ALBENDAZOLE) [Concomitant]

REACTIONS (4)
  - COUGH [None]
  - LOCAL SWELLING [None]
  - PRURITUS GENERALISED [None]
  - RASH MACULO-PAPULAR [None]
